FAERS Safety Report 13926140 (Version 1)
Quarter: 2017Q3

REPORT INFORMATION
  Report Type: Spontaneous
  Country: FR (occurrence: FR)
  Receive Date: 20170831
  Receipt Date: 20170831
  Transmission Date: 20171127
  Serious: Yes (Hospitalization, Other)
  Sender: FDA-Public Use
  Company Number: FR-PFIZER INC-2017370305

PATIENT
  Age: 56 Year
  Sex: Male

DRUGS (6)
  1. FLUOROURACIL ACCORD /00098801/ [Suspect]
     Active Substance: FLUOROURACIL
     Dosage: 1455 MG, DAILY
     Route: 041
     Dates: start: 20170321, end: 20170325
  2. DOCETAXEL HOSPIRA [Suspect]
     Active Substance: DOCETAXEL
     Indication: TONSIL CANCER
     Dosage: 145 MG, CYCLIC
     Route: 041
     Dates: start: 20170301, end: 20170301
  3. DOCETAXEL HOSPIRA [Suspect]
     Active Substance: DOCETAXEL
     Dosage: 145 MG, CYCLIC
     Route: 041
     Dates: start: 20170321, end: 20170321
  4. FLUOROURACIL ACCORD /00098801/ [Suspect]
     Active Substance: FLUOROURACIL
     Indication: TONSIL CANCER
     Dosage: 1455 MG, DAILY
     Route: 041
     Dates: start: 20170301, end: 20170306
  5. CISPLATINE ACCORD [Suspect]
     Active Substance: CISPLATIN
     Indication: TONSIL CANCER
     Dosage: 145 MG, CYCLIC
     Route: 041
     Dates: start: 20170301, end: 20170301
  6. CISPLATINE ACCORD [Suspect]
     Active Substance: CISPLATIN
     Dosage: 145 MG, CYCLIC
     Route: 041
     Dates: start: 20170321, end: 20170321

REACTIONS (3)
  - Anaemia [Recovering/Resolving]
  - Fungal infection [Unknown]
  - Febrile neutropenia [Recovered/Resolved]

NARRATIVE: CASE EVENT DATE: 20170328
